FAERS Safety Report 19248526 (Version 2)
Quarter: 2021Q2

REPORT INFORMATION
  Report Type: Spontaneous
  Country: FR (occurrence: FR)
  Receive Date: 20210512
  Receipt Date: 20210519
  Transmission Date: 20210717
  Serious: Yes (Hospitalization)
  Sender: FDA-Public Use
  Company Number: FR-EISAI MEDICAL RESEARCH-EC-2021-092384

PATIENT
  Age: 25 Year
  Sex: Male
  Weight: 68 kg

DRUGS (3)
  1. FYCOMPA [Suspect]
     Active Substance: PERAMPANEL
     Indication: EPILEPSY
     Route: 048
     Dates: start: 20200622
  2. CARBAMAZE [Interacting]
     Active Substance: CARBAMAZEPINE
     Indication: EPILEPSY
     Route: 048
     Dates: start: 20200106
  3. FYCOMPA [Interacting]
     Active Substance: PERAMPANEL
     Dosage: DOSE INCREASED, FREQUENCY UNKNOWN
     Route: 048

REACTIONS (2)
  - Drug interaction [Recovered/Resolved]
  - Anticonvulsant drug level decreased [Recovering/Resolving]
